FAERS Safety Report 10241380 (Version 1)
Quarter: 2014Q1

REPORT INFORMATION
  Report Type: Spontaneous
  Country: US (occurrence: None)
  Receive Date: 20140306
  Receipt Date: 20140306
  Transmission Date: 20141002
  Serious: Yes (Other)
  Sender: FDA-Public Use
  Company Number: 163-21880-13043339

PATIENT
  Age: 75 Year
  Sex: Female
  Weight: 171.01 kg

DRUGS (14)
  1. REVLIMID (LENALIDOMIDE) (5 MILLIGRAM, CAPSULES) [Suspect]
     Indication: PLASMA CELL MYELOMA
     Route: 048
     Dates: start: 20110601
  2. FUROSEMIDE (UNKNOWN) [Concomitant]
  3. LISINOPRIL (UNKNOWN) [Concomitant]
  4. GABAPENTIN (UNKOWN) [Concomitant]
  5. LOVASTATIN (UNKNOWN) [Concomitant]
  6. ACTOS (PIOGLITAZONE) (UNKNOWN) [Concomitant]
  7. ACETAMINOPHEN (PARACETAMOL) (UNKNOWN) [Concomitant]
  8. SPIRONOLACTONE (UNKNOWN) [Concomitant]
  9. STOOL SOFTENER (DOCUSATE SODIUM) (UNKNOWN) [Concomitant]
  10. HYDROCODONE-ACETAMINOPHEN (PROCET USA/) (UNKNOWN) [Concomitant]
  11. ATENOLOL (UNKNOWN) [Concomitant]
  12. AMLODIPINE (UNKNOWN) [Concomitant]
  13. SODIUM BICARBONATE (UNKNOWN) [Concomitant]
  14. VITAMIN D (ERGOCALCIFEROL) (UNKNOWN) [Concomitant]

REACTIONS (1)
  - Renal failure [None]
